FAERS Safety Report 11200215 (Version 1)
Quarter: 2015Q2

REPORT INFORMATION
  Report Type: Spontaneous
  Country: US (occurrence: US)
  Receive Date: 20150618
  Receipt Date: 20150618
  Transmission Date: 20150821
  Serious: Yes (Hospitalization)
  Sender: FDA-Public Use
  Company Number: US-UNITED THERAPEUTICS-UNT-2015-006379

PATIENT
  Age: 34 Year
  Sex: Female
  Weight: 92.97 kg

DRUGS (1)
  1. REMODULIN [Suspect]
     Active Substance: TREPROSTINIL
     Indication: PULMONARY ARTERIAL HYPERTENSION
     Dosage: 0.0425 ?G/KG, CONTINUING
     Route: 058
     Dates: start: 20150423

REACTIONS (4)
  - Oedema peripheral [Unknown]
  - Localised oedema [Unknown]
  - Dyspnoea [Unknown]
  - Pulmonary arterial hypertension [Unknown]

NARRATIVE: CASE EVENT DATE: 201505
